FAERS Safety Report 5010154-4 (Version None)
Quarter: 2006Q2

REPORT INFORMATION
  Report Type: 
  Country: None (occurrence: None)
  Receive Date: 20060404
  Receipt Date: 20051212
  Transmission Date: 20061013
  Serious: No
  Sender: FDA-Public Use
  Company Number: US200512002062

PATIENT
  Sex: Female

DRUGS (2)
  1. CYMBALTA [Suspect]
     Indication: DEPRESSION
     Dosage: 30 MG; SEE IMAGE
     Dates: start: 20051118, end: 20051124
  2. CYMBALTA [Suspect]
     Indication: DEPRESSION
     Dosage: 30 MG; SEE IMAGE
     Dates: start: 20051125, end: 20051210

REACTIONS (2)
  - NAUSEA [None]
  - SOMNOLENCE [None]
